FAERS Safety Report 8840028 (Version 2)
Quarter: 2012Q4

REPORT INFORMATION
  Report Type: 
  Country: US (occurrence: US)
  Receive Date: 20121015
  Receipt Date: 20121205
  Transmission Date: 20130627
  Serious: Yes (Other)
  Sender: FDA-Public Use
  Company Number: US-PFIZER INC-2012253527

PATIENT
  Age: 75 Year
  Sex: Male
  Weight: 50.8 kg

DRUGS (5)
  1. ADVIL [Suspect]
     Indication: PAIN
     Dosage: 200mg two tablets daily in the morning
     Dates: start: 201209
  2. ADVIL [Suspect]
     Dosage: 200mg two tablets two times a day
     Dates: start: 20121009, end: 20121009
  3. ADVIL [Suspect]
     Dosage: 2 tablet a day
     Dates: start: 201210
  4. BYSTOLIC [Concomitant]
     Indication: BLOOD PRESSURE HIGH
     Dosage: 10 mg, daily
  5. TEKTURNA HCT [Concomitant]
     Indication: BLOOD PRESSURE HIGH
     Dosage: 200/12.5 mg, UNK

REACTIONS (2)
  - Blood pressure increased [Unknown]
  - Incorrect drug administration duration [Unknown]
